FAERS Safety Report 23459443 (Version 1)
Quarter: 2024Q1

REPORT INFORMATION
  Report Type: Spontaneous
  Country: CH (occurrence: CH)
  Receive Date: 20240131
  Receipt Date: 20240131
  Transmission Date: 20240409
  Serious: Yes (Other)
  Sender: FDA-Public Use
  Company Number: CH-BAYER-2024A015420

PATIENT
  Sex: Male

DRUGS (1)
  1. EYLEA [Suspect]
     Active Substance: AFLIBERCEPT
     Indication: Product used for unknown indication
     Dosage: UNK, 40 MG/ML

REACTIONS (7)
  - Subretinal fluid [Unknown]
  - Choroidal neovascularisation [Unknown]
  - Hypermetropia [Unknown]
  - Anterior chamber cell [Recovered/Resolved]
  - Detachment of retinal pigment epithelium [Unknown]
  - Injection site pain [Recovered/Resolved]
  - Drug ineffective [Unknown]
